FAERS Safety Report 19353363 (Version 1)
Quarter: 2021Q2

REPORT INFORMATION
  Report Type: Report from Study
  Country: None (occurrence: IL)
  Receive Date: 20210601
  Receipt Date: 20210601
  Transmission Date: 20210717
  Serious: Yes (Death, Hospitalization)
  Sender: FDA-Public Use
  Company Number: IL-ABBVIE-21K-082-3928117-00

PATIENT
  Age: 82 Year
  Sex: Female
  Weight: 50.8 kg

DRUGS (25)
  1. VENCLEXTA [Suspect]
     Active Substance: VENETOCLAX
     Route: 048
     Dates: start: 20200531, end: 20200618
  2. VENCLEXTA [Suspect]
     Active Substance: VENETOCLAX
     Route: 048
     Dates: start: 20200907, end: 20200927
  3. AZACITIDINE. [Suspect]
     Active Substance: AZACITIDINE
     Dosage: QD
     Route: 058
     Dates: start: 20200719, end: 20200727
  4. AZACITIDINE. [Suspect]
     Active Substance: AZACITIDINE
     Dosage: QD
     Route: 058
     Dates: start: 20200412, end: 20200421
  5. SIMVACOR [Concomitant]
     Active Substance: SIMVASTATIN
     Indication: PRODUCT USED FOR UNKNOWN INDICATION
     Dates: start: 20081204
  6. VENCLEXTA [Suspect]
     Active Substance: VENETOCLAX
     Indication: ACUTE MYELOID LEUKAEMIA
     Route: 048
     Dates: start: 20191112, end: 20191112
  7. VENCLEXTA [Suspect]
     Active Substance: VENETOCLAX
     Route: 048
     Dates: start: 20191114, end: 20200114
  8. AZACITIDINE. [Suspect]
     Active Substance: AZACITIDINE
     Dosage: QD
     Route: 058
     Dates: start: 20200907, end: 20200915
  9. REOLIN [Concomitant]
     Indication: PRODUCT USED FOR UNKNOWN INDICATION
     Dates: start: 20100928
  10. TRITACE [Concomitant]
     Active Substance: RAMIPRIL
     Indication: PRODUCT USED FOR UNKNOWN INDICATION
     Dates: start: 20081204
  11. NYSTATIN. [Concomitant]
     Active Substance: NYSTATIN
     Indication: PRODUCT USED FOR UNKNOWN INDICATION
     Dates: start: 20191124
  12. ALLORIL [Concomitant]
     Active Substance: ALLOPURINOL
     Indication: PROPHYLAXIS
     Dates: start: 20191112
  13. VENCLEXTA [Suspect]
     Active Substance: VENETOCLAX
     Route: 048
     Dates: start: 20200412, end: 20200512
  14. VENCLEXTA [Suspect]
     Active Substance: VENETOCLAX
     Route: 048
     Dates: start: 20201101, end: 20201201
  15. AZACITIDINE. [Suspect]
     Active Substance: AZACITIDINE
     Dosage: QD
     Route: 058
     Dates: start: 20191215, end: 20191223
  16. AZACITIDINE. [Suspect]
     Active Substance: AZACITIDINE
     Dosage: QD
     Route: 058
     Dates: start: 20200223, end: 20200304
  17. VENCLEXTA [Suspect]
     Active Substance: VENETOCLAX
     Route: 048
     Dates: start: 20200126, end: 20200331
  18. AZACITIDINE. [Suspect]
     Active Substance: AZACITIDINE
     Dosage: QD
     Route: 058
     Dates: start: 20200126, end: 20200203
  19. FERRIPEL [Concomitant]
     Indication: PRODUCT USED FOR UNKNOWN INDICATION
     Dates: start: 20120625
  20. VENCLEXTA [Suspect]
     Active Substance: VENETOCLAX
     Route: 048
     Dates: start: 20191113, end: 20191113
  21. AZACITIDINE. [Suspect]
     Active Substance: AZACITIDINE
     Indication: ACUTE MYELOID LEUKAEMIA
     Dosage: QD
     Route: 058
     Dates: start: 20191112, end: 20191118
  22. VENCLEXTA [Suspect]
     Active Substance: VENETOCLAX
     Route: 048
     Dates: start: 20200719, end: 20200802
  23. SIMVAXON [Concomitant]
     Indication: PRODUCT USED FOR UNKNOWN INDICATION
     Dates: start: 20081015
  24. AZACITIDINE. [Suspect]
     Active Substance: AZACITIDINE
     Dosage: QD
     Route: 058
     Dates: start: 20200531, end: 20200608
  25. AZACITIDINE. [Suspect]
     Active Substance: AZACITIDINE
     Dosage: QD
     Route: 058
     Dates: start: 20201101, end: 20201105

REACTIONS (2)
  - Haemorrhage intracranial [Fatal]
  - Febrile neutropenia [Recovered/Resolved]

NARRATIVE: CASE EVENT DATE: 20210318
